FAERS Safety Report 7941191-5 (Version None)
Quarter: 2011Q4

REPORT INFORMATION
  Report Type: 
  Country: None (occurrence: None)
  Receive Date: 20111122
  Receipt Date: 20111122
  Transmission Date: 20120403
  Serious: Yes (Life-Threatening, Other)
  Sender: FDA-Public Use
  Company Number: None

PATIENT
  Age: 57 Year
  Sex: Male
  Weight: 86.1834 kg

DRUGS (1)
  1. ZELBORAF [Suspect]
     Indication: MALIGNANT MELANOMA
     Dosage: 1460 ---MG  2 X A DAY
     Dates: start: 20110801, end: 20110821

REACTIONS (15)
  - MYALGIA [None]
  - RASH [None]
  - MUSCLE SPASMS [None]
  - PYREXIA [None]
  - LYMPHADENOPATHY [None]
  - HYPERHIDROSIS [None]
  - PALPITATIONS [None]
  - DYSPNOEA [None]
  - ANGINA PECTORIS [None]
  - BLOOD PRESSURE ABNORMAL [None]
  - HEART RATE INCREASED [None]
  - HEADACHE [None]
  - PRURITUS [None]
  - URTICARIA [None]
  - FATIGUE [None]
